FAERS Safety Report 7200313-4 (Version None)
Quarter: 2010Q4

REPORT INFORMATION
  Report Type: 
  Country: None (occurrence: None)
  Receive Date: 20101228
  Receipt Date: 20101222
  Transmission Date: 20110411
  Serious: Yes (Hospitalization)
  Sender: FDA-Public Use
  Company Number: B0690529A

PATIENT
  Sex: Male

DRUGS (6)
  1. AUGMENTIN '125' [Suspect]
     Route: 042
     Dates: start: 20090101, end: 20090130
  2. CASODEX [Suspect]
     Route: 042
     Dates: start: 20090129, end: 20090317
  3. NEXIUM [Suspect]
     Route: 048
     Dates: start: 20090117
  4. ALLOPURINOL [Concomitant]
  5. PREVISCAN [Concomitant]
  6. ZOLADEX [Concomitant]
     Route: 042
     Dates: start: 20090129

REACTIONS (3)
  - DYSHIDROSIS [None]
  - ECZEMA [None]
  - SKIN TEST NEGATIVE [None]
